FAERS Safety Report 5020424-1 (Version None)
Quarter: 2006Q2

REPORT INFORMATION
  Report Type: 
  Country: None (occurrence: None)
  Receive Date: 20060602
  Receipt Date: 20060524
  Transmission Date: 20061013
  Serious: Yes (Death, Hospitalization)
  Sender: FDA-Public Use
  Company Number: 2006-05-1833

PATIENT
  Age: 39 Year
  Sex: Male

DRUGS (10)
  1. REBETOL [Suspect]
     Indication: ENCEPHALITIS
     Dosage: 200 MG ORAL; SEE IMAGE
     Route: 048
     Dates: start: 20020115, end: 20020115
  2. REBETOL [Suspect]
     Indication: ENCEPHALITIS
     Dosage: 200 MG ORAL; SEE IMAGE
     Route: 048
     Dates: start: 20020116, end: 20020116
  3. REBETOL [Suspect]
     Indication: ENCEPHALITIS
     Dosage: 200 MG ORAL; SEE IMAGE
     Route: 048
     Dates: start: 20020117, end: 20020117
  4. REBETOL [Suspect]
     Indication: ENCEPHALITIS
     Dosage: 200 MG ORAL; SEE IMAGE
     Route: 048
     Dates: start: 20020118, end: 20020127
  5. REBETOL [Suspect]
     Indication: ENCEPHALITIS
     Dosage: 200 MG ORAL; SEE IMAGE
     Route: 048
     Dates: start: 20020202, end: 20020207
  6. VIRAZOLE [Suspect]
     Indication: ENCEPHALITIS
     Dosage: 1200 MG QD INTRAVENOUS
     Route: 042
     Dates: start: 20020128, end: 20020201
  7. COPEGUS [Suspect]
     Indication: ENCEPHALITIS
     Dosage: 600 MG PO
     Route: 048
     Dates: start: 20060429
  8. XANAX [Concomitant]
  9. STILNOX [Concomitant]
  10. RISPERDAL [Concomitant]

REACTIONS (20)
  - CEREBRAL ATROPHY [None]
  - CEREBROVASCULAR DISORDER [None]
  - CONDITION AGGRAVATED [None]
  - CONFUSIONAL STATE [None]
  - CONVULSION [None]
  - DEPRESSION [None]
  - DIFFICULTY IN WALKING [None]
  - DISTURBANCE IN ATTENTION [None]
  - ENCEPHALITIS [None]
  - EOSINOPHILIA [None]
  - EXTRAPYRAMIDAL DISORDER [None]
  - HAEMOLYTIC ANAEMIA [None]
  - MEMORY IMPAIRMENT [None]
  - MYDRIASIS [None]
  - MYOCLONUS [None]
  - NEUROLOGICAL SYMPTOM [None]
  - PARVOVIRUS INFECTION [None]
  - PULMONARY CONGESTION [None]
  - PYREXIA [None]
  - RASH [None]
